FAERS Safety Report 12573605 (Version 1)
Quarter: 2016Q3

REPORT INFORMATION
  Report Type: Spontaneous
  Country: US (occurrence: None)
  Receive Date: 20160719
  Receipt Date: 20160719
  Transmission Date: 20161109
  Serious: No
  Sender: FDA-Public Use
  Company Number: None

PATIENT
  Age: 34 Year
  Sex: Male

DRUGS (1)
  1. FINASTERIDE 1MG [Suspect]
     Active Substance: FINASTERIDE
     Route: 048
     Dates: start: 20160705, end: 20160715

REACTIONS (5)
  - Product quality issue [None]
  - Asthenia [None]
  - Tremor [None]
  - Dizziness [None]
  - Anxiety [None]

NARRATIVE: CASE EVENT DATE: 20160706
